FAERS Safety Report 11102351 (Version 1)
Quarter: 2015Q2

REPORT INFORMATION
  Report Type: Spontaneous
  Country: JP (occurrence: JP)
  Receive Date: 20150511
  Receipt Date: 20150511
  Transmission Date: 20150821
  Serious: Yes (Other)
  Sender: FDA-Public Use
  Company Number: JP-TEVA-561637ISR

PATIENT
  Age: 86 Year
  Sex: Male
  Weight: 48 kg

DRUGS (3)
  1. DABIGATRAN ETEXILATE [Interacting]
     Active Substance: DABIGATRAN ETEXILATE
     Indication: ANTICOAGULANT THERAPY
     Dosage: 75 MILLIGRAM DAILY;
     Route: 048
  2. CLARITHROMYCIN. [Suspect]
     Active Substance: CLARITHROMYCIN
     Route: 065
  3. DABIGATRAN ETEXILATE [Interacting]
     Active Substance: DABIGATRAN ETEXILATE
     Indication: ANTICOAGULANT THERAPY
     Dosage: 150 MILLIGRAM DAILY;
     Route: 048

REACTIONS (4)
  - Haemorrhage subcutaneous [Unknown]
  - Epistaxis [Unknown]
  - Cerebral infarction [Unknown]
  - Drug interaction [Unknown]
